FAERS Safety Report 20364860 (Version 2)
Quarter: 2022Q1

REPORT INFORMATION
  Report Type: Spontaneous
  Country: NO (occurrence: None)
  Receive Date: 20220122
  Receipt Date: 20220202
  Transmission Date: 20220424
  Serious: Yes (Death)
  Sender: FDA-Public Use
  Company Number: NO-ROCHE-3005341

PATIENT

DRUGS (2)
  1. ALECTINIB [Suspect]
     Active Substance: ALECTINIB
     Indication: Product used for unknown indication
     Route: 065
  2. LORLATINIB [Concomitant]
     Active Substance: LORLATINIB

REACTIONS (2)
  - Disease progression [Fatal]
  - Lung cancer metastatic [Fatal]
